FAERS Safety Report 8118852-0 (Version None)
Quarter: 2012Q1

REPORT INFORMATION
  Report Type: 
  Country: None (occurrence: None)
  Receive Date: 20120207
  Receipt Date: 20120127
  Transmission Date: 20120608
  Serious: Yes (Other)
  Sender: FDA-Public Use
  Company Number: US-ELI_LILLY_AND_COMPANY-US201201009209

PATIENT
  Sex: Male

DRUGS (2)
  1. PLAVIX [Concomitant]
  2. EFFIENT [Suspect]
     Dosage: 10 MG, QD
     Dates: start: 20120126

REACTIONS (1)
  - THROMBOSIS IN DEVICE [None]
